FAERS Safety Report 4990759-7 (Version None)
Quarter: 2006Q2

REPORT INFORMATION
  Report Type: 
  Country: None (occurrence: None)
  Receive Date: 20060428
  Receipt Date: 20060411
  Transmission Date: 20061013
  Serious: Yes (Hospitalization)
  Sender: FDA-Public Use
  Company Number: GB200604001851

PATIENT
  Age: 72 Year
  Sex: Female

DRUGS (2)
  1. FORTEO [Suspect]
     Indication: OSTEOPOROSIS
     Dosage: 20 UG, DAILY (1/D),
     Dates: start: 20050927
  2. FORTEO [Concomitant]

REACTIONS (12)
  - DIZZINESS [None]
  - EYELID PTOSIS [None]
  - GOITRE [None]
  - HORNER'S SYNDROME [None]
  - HYSTERECTOMY [None]
  - INTERVERTEBRAL DISC SPACE NARROWING [None]
  - NECK PAIN [None]
  - PARAESTHESIA [None]
  - SPINAL OSTEOARTHRITIS [None]
  - SPONDYLITIS [None]
  - VASCULAR CALCIFICATION [None]
  - VISUAL DISTURBANCE [None]
